FAERS Safety Report 9400380 (Version 1)
Quarter: 2013Q3

REPORT INFORMATION
  Report Type: Spontaneous
  Country: TR (occurrence: TR)
  Receive Date: 20130711
  Receipt Date: 20130711
  Transmission Date: 20140515
  Serious: Yes (Other)
  Sender: FDA-Public Use
  Company Number: FK201302375

PATIENT
  Age: 29 Year
  Sex: Male

DRUGS (2)
  1. INDOMETHACIN [Suspect]
     Indication: ANKYLOSING SPONDYLITIS
  2. SULFASALAZINE (SULFASALAZINE) [Suspect]
     Indication: ANKYLOSING SPONDYLITIS

REACTIONS (1)
  - Drug reaction with eosinophilia and systemic symptoms [None]
